FAERS Safety Report 11126061 (Version 1)
Quarter: 2015Q2

REPORT INFORMATION
  Report Type: Spontaneous
  Country: US (occurrence: US)
  Receive Date: 20150520
  Receipt Date: 20150520
  Transmission Date: 20150821
  Serious: Yes (Other)
  Sender: FDA-Public Use
  Company Number: US-ASTRAZENECA-2015SE44925

PATIENT
  Age: 76 Year
  Sex: Male

DRUGS (2)
  1. CRESTOR [Suspect]
     Active Substance: ROSUVASTATIN CALCIUM
     Indication: HYPERLIPIDAEMIA
     Route: 048
  2. BRILINTA [Suspect]
     Active Substance: TICAGRELOR
     Indication: MYOCARDIAL INFARCTION
     Route: 048
     Dates: start: 2015

REACTIONS (6)
  - Hypertension [Unknown]
  - Transient ischaemic attack [Unknown]
  - Coronary artery disease [Unknown]
  - Acute myocardial infarction [Unknown]
  - Diarrhoea [Unknown]
  - Angiopathy [Unknown]

NARRATIVE: CASE EVENT DATE: 2015
